FAERS Safety Report 5983857-2 (Version None)
Quarter: 2008Q4

REPORT INFORMATION
  Report Type: 
  Country: None (occurrence: None)
  Receive Date: 20081208
  Receipt Date: 20080805
  Transmission Date: 20090506
  Serious: Yes (Other)
  Sender: FDA-Public Use
  Company Number: US-AMGEN-QUU299533

PATIENT
  Sex: Female

DRUGS (3)
  1. ENBREL [Suspect]
     Indication: PSORIASIS
     Route: 058
     Dates: start: 20040101, end: 20080701
  2. ATIVAN [Concomitant]
  3. ASPIRIN [Concomitant]

REACTIONS (1)
  - CHRONIC MYELOID LEUKAEMIA [None]
